FAERS Safety Report 15246722 (Version 1)
Quarter: 2018Q3

REPORT INFORMATION
  Report Type: Spontaneous
  Country: US (occurrence: US)
  Receive Date: 20180806
  Receipt Date: 20180806
  Transmission Date: 20181010
  Serious: No
  Sender: FDA-Public Use
  Company Number: US-009507513-1808USA001790

PATIENT
  Age: 22 Year
  Sex: Female
  Weight: 83.45 kg

DRUGS (1)
  1. NEXPLANON [Suspect]
     Active Substance: ETONOGESTREL
     Indication: CONTRACEPTION
     Dosage: 1 IMPLANT, UNK
     Route: 059
     Dates: start: 20170502

REACTIONS (6)
  - Hypomenorrhoea [Not Recovered/Not Resolved]
  - Menstruation normal [Not Recovered/Not Resolved]
  - Expired device used [Unknown]
  - Amenorrhoea [Not Recovered/Not Resolved]
  - Plastic surgery [Not Recovered/Not Resolved]
  - Menorrhagia [Not Recovered/Not Resolved]

NARRATIVE: CASE EVENT DATE: 20170502
